FAERS Safety Report 7320024-4 (Version None)
Quarter: 2011Q1

REPORT INFORMATION
  Report Type: 
  Country: None (occurrence: None)
  Receive Date: 20110214
  Receipt Date: 20110207
  Transmission Date: 20110831
  Serious: Yes (Other)
  Sender: FDA-Public Use
  Company Number: IMP_05347_2011

PATIENT
  Sex: Male

DRUGS (5)
  1. FLUDROCORTISONE (0.1 MG, 0.1 MG, 0.1MG) [Suspect]
     Indication: BLOOD PRESSURE MANAGEMENT
     Dosage: (0.1 MG BID ORAL), (TAPERED TO ONE TABLET, 0.1 MG EVERY OTHER DAY ORAL), (TAPERED TO 1/2 TABLET EVED
     Route: 048
     Dates: start: 20101201
  2. FLUDROCORTISONE (0.1 MG, 0.1 MG, 0.1MG) [Suspect]
     Indication: BLOOD PRESSURE MANAGEMENT
     Dosage: (0.1 MG BID ORAL), (TAPERED TO ONE TABLET, 0.1 MG EVERY OTHER DAY ORAL), (TAPERED TO 1/2 TABLET EVED
     Route: 048
     Dates: start: 20110125, end: 20110131
  3. FLUDROCORTISONE (0.1 MG, 0.1 MG, 0.1MG) [Suspect]
     Indication: BLOOD PRESSURE MANAGEMENT
     Dosage: (0.1 MG BID ORAL), (TAPERED TO ONE TABLET, 0.1 MG EVERY OTHER DAY ORAL), (TAPERED TO 1/2 TABLET EVED
     Route: 048
     Dates: start: 20101201
  4. PAXIL [Concomitant]
  5. OMEPRAZOLE [Concomitant]

REACTIONS (6)
  - SUICIDAL IDEATION [None]
  - NAUSEA [None]
  - DIZZINESS [None]
  - MYALGIA [None]
  - SWELLING FACE [None]
  - DIARRHOEA [None]
